FAERS Safety Report 8805934 (Version 1)
Quarter: 2012Q4

REPORT INFORMATION
  Report Type: Spontaneous
  Country: US (occurrence: None)
  Receive Date: 20120918
  Receipt Date: 20120918
  Transmission Date: 20130627
  Serious: Yes (Death)
  Sender: FDA-Public Use
  Company Number: 2012MA011163

PATIENT
  Age: 31 Year
  Sex: Male

DRUGS (4)
  1. CITALOPRAM HYDROBROMIDE [Suspect]
     Indication: ANXIETY
     Route: 048
     Dates: start: 20101121
  2. MACROGOL [Concomitant]
  3. CINCHOCAINE [Concomitant]
  4. HYDROCORTISONE [Concomitant]

REACTIONS (1)
  - Sudden death [None]
